FAERS Safety Report 6925908-4 (Version None)
Quarter: 2010Q4

REPORT INFORMATION
  Report Type: 
  Country: None (occurrence: None)
  Receive Date: 20100810
  Receipt Date: 20100730
  Transmission Date: 20110411
  Serious: Yes (Hospitalization)
  Sender: FDA-Public Use
  Company Number: 2010EU003752

PATIENT
  Age: 46 Year
  Sex: Male
  Weight: 70.4 kg

DRUGS (2)
  1. TACROLIMUS [Suspect]
     Indication: RENAL TRANSPLANT
     Dosage: 1.5 MG/DAY, ORAL
     Route: 048
     Dates: start: 20071116, end: 20100617
  2. ENALAPRIL MALEATE [Suspect]
     Indication: HYPERTENSION

REACTIONS (2)
  - RENAL ARTERY STENOSIS [None]
  - RENAL IMPAIRMENT [None]
